FAERS Safety Report 5847890-3 (Version None)
Quarter: 2008Q3

REPORT INFORMATION
  Report Type: 
  Country: None (occurrence: None)
  Receive Date: 20080814
  Receipt Date: 20080730
  Transmission Date: 20090109
  Serious: Yes (Death)
  Sender: FDA-Public Use
  Company Number: MK-6036909

PATIENT
  Age: 51 Year
  Sex: Male

DRUGS (7)
  1. CLOMIPRAMINE HCL [Suspect]
     Indication: DRUG USE FOR UNKNOWN INDICATION
     Dosage: 125 MG; DAILY; ORAL
     Route: 048
     Dates: start: 20061201
  2. CLOZAPINE [Suspect]
     Indication: SCHIZOAFFECTIVE DISORDER
     Dosage: 200 MG; DAILY; ORAL
     Route: 048
     Dates: start: 20000101
  3. AMISULPRIDE [Concomitant]
  4. LITHIUM CARBONATE [Concomitant]
  5. MOVICOL /01053601/ [Concomitant]
  6. PROCYCLIDINE HYDROCHLORIDE 2MG TAB [Concomitant]
  7. VENLAFAXINE HCL [Concomitant]

REACTIONS (4)
  - COLONIC ATONY [None]
  - CONSTIPATION [None]
  - KYPHOSIS [None]
  - RESPIRATORY FAILURE [None]
